FAERS Safety Report 8608959-3 (Version None)
Quarter: 2012Q3

REPORT INFORMATION
  Report Type: 
  Country: None (occurrence: None)
  Receive Date: 20120821
  Receipt Date: 20120813
  Transmission Date: 20120928
  Serious: Yes (Hospitalization)
  Sender: FDA-Public Use
  Company Number: US-GLAXOSMITHKLINE-A0744979A

PATIENT
  Age: 45 Year
  Sex: Female
  Weight: 90.9 kg

DRUGS (27)
  1. AMITRIPTYLINE HYDROCHLORIDE [Concomitant]
  2. FLUCONAZOLE [Concomitant]
  3. METOPROLOL TARTRATE [Concomitant]
  4. ACETAMINOPHEN [Concomitant]
  5. AZITHROMYCIN [Concomitant]
  6. BENAZEPRIL HYDROCHLORIDE [Concomitant]
  7. CYCLOBENZAPRINE [Concomitant]
  8. HYDROCODONE [Concomitant]
  9. SPIRIVA [Concomitant]
  10. GLUCOTROL [Concomitant]
     Dates: start: 20060101
  11. AMOXICILLIN [Concomitant]
  12. SIMVASTATIN [Concomitant]
  13. ZETIA [Concomitant]
  14. FUROSEMIDE [Concomitant]
  15. LOTREL [Concomitant]
  16. AVANDIA [Suspect]
     Indication: TYPE 2 DIABETES MELLITUS
     Dosage: 4MG TWICE PER DAY
     Route: 048
     Dates: start: 20050101, end: 20070101
  17. PREMPRO [Concomitant]
  18. PROPOXYPHENE HCL [Concomitant]
  19. ENALAPRIL MALEATE [Concomitant]
  20. KETOROLAC [Concomitant]
  21. FLUTICASONE PROPIONATE [Concomitant]
  22. ALBUTEROL [Concomitant]
  23. GRIS-PEG [Concomitant]
  24. KLOR-CON [Concomitant]
  25. POTASSIUM CHLORIDE [Concomitant]
  26. IPRATROPIUM BROMIDE [Concomitant]
  27. NICOTINE [Concomitant]

REACTIONS (2)
  - MYOCARDIAL INFARCTION [None]
  - CARDIAC FAILURE CONGESTIVE [None]
